FAERS Safety Report 8885888 (Version 1)
Quarter: 2012Q4

REPORT INFORMATION
  Report Type: 
  Country: US (occurrence: US)
  Receive Date: 20121101
  Receipt Date: 20121101
  Transmission Date: 20130627
  Serious: No
  Sender: FDA-Public Use
  Company Number: US-ASTRAZENECA-2012SE78860

PATIENT
  Age: 38 Year
  Sex: Female
  Weight: 108.9 kg

DRUGS (3)
  1. NEXIUM [Suspect]
     Indication: GASTROOESOPHAGEAL REFLUX DISEASE
     Route: 048
  2. SEROQUEL XR [Suspect]
     Indication: BIPOLAR DISORDER
     Route: 048
  3. NORCO [Concomitant]
     Indication: FIBROMYALGIA

REACTIONS (7)
  - Fibromyalgia [Unknown]
  - Panic attack [Recovering/Resolving]
  - Thinking abnormal [Recovering/Resolving]
  - Memory impairment [Recovering/Resolving]
  - Mental disorder [Unknown]
  - Anxiety [Unknown]
  - Off label use [Unknown]
